FAERS Safety Report 5564973-6 (Version None)
Quarter: 2007Q4

REPORT INFORMATION
  Report Type: 
  Country: None (occurrence: None)
  Receive Date: 20071218
  Receipt Date: 20071213
  Transmission Date: 20080405
  Serious: Yes (Hospitalization)
  Sender: FDA-Public Use
  Company Number: B0500015A

PATIENT
  Age: 18 Month
  Sex: Female

DRUGS (1)
  1. AUGMENTIN [Suspect]
     Indication: ACUTE TONSILLITIS
     Dosage: 40MGKD PER DAY
     Route: 048
     Dates: start: 20070129, end: 20070206

REACTIONS (1)
  - GENERALISED OEDEMA [None]
